FAERS Safety Report 14752681 (Version 2)
Quarter: 2021Q4

REPORT INFORMATION
  Report Type: Spontaneous
  Country: FR (occurrence: FR)
  Receive Date: 20180412
  Receipt Date: 20211102
  Transmission Date: 20220303
  Serious: Yes (Hospitalization)
  Sender: FDA-Public Use
  Company Number: None

PATIENT
  Age: 63 Year
  Sex: Male
  Weight: 71 kg

DRUGS (5)
  1. CLOMIPRAMINE [Suspect]
     Active Substance: CLOMIPRAMINE
     Indication: Intentional overdose
     Dosage: 50 DF, UNK
     Route: 048
     Dates: start: 20171015, end: 20171015
  2. VENLAFAXINE [Suspect]
     Active Substance: VENLAFAXINE HYDROCHLORIDE
     Indication: Intentional overdose
     Dosage: UNK (NP)
     Route: 048
     Dates: start: 20171015, end: 20171015
  3. MIRTAZAPINE [Suspect]
     Active Substance: MIRTAZAPINE
     Indication: Intentional overdose
     Dosage: 300 MG
     Route: 048
     Dates: start: 20171015, end: 20171015
  4. TRIMEPRAZINE [Suspect]
     Active Substance: TRIMEPRAZINE
     Indication: Intentional overdose
     Dosage: 60 ML, UNK(AS 2 BOTTLES OF 30 ML)
     Route: 048
     Dates: start: 20171015, end: 20171015
  5. CYAMEMAZINE [Suspect]
     Active Substance: CYAMEMAZINE
     Indication: Intentional overdose
     Dosage: 60 ML, UNK (3 BOTTLES 30ML)
     Route: 048
     Dates: start: 20171015, end: 20171015

REACTIONS (6)
  - Miosis [Recovered/Resolved]
  - Suicide attempt [Unknown]
  - Extrapyramidal disorder [Recovered/Resolved]
  - Coma [Recovered/Resolved]
  - Miosis [Recovered/Resolved]
  - Intentional overdose [Recovered/Resolved]

NARRATIVE: CASE EVENT DATE: 20171015
